FAERS Safety Report 23980585 (Version 2)
Quarter: 2024Q3

REPORT INFORMATION
  Report Type: Spontaneous
  Country: US (occurrence: US)
  Receive Date: 20240617
  Receipt Date: 20240802
  Transmission Date: 20241016
  Serious: Yes (Hospitalization)
  Sender: PADAGIS
  Company Number: US-PADAGIS-2024PAD00990

PATIENT

DRUGS (1)
  1. TESTOSTERONE CYPIONATE [Suspect]
     Active Substance: TESTOSTERONE CYPIONATE
     Indication: Hormone therapy
     Dosage: SUBDERMAL TESTOSTERONE PELLETS (TOTAL DOSE OF 150 MG EVERY 3.5 MONTHS
     Route: 059

REACTIONS (2)
  - Prostatic mass [Unknown]
  - Product use issue [Unknown]
